FAERS Safety Report 10109255 (Version 4)
Quarter: 2014Q3

REPORT INFORMATION
  Report Type: Spontaneous
  Country: JP (occurrence: None)
  Receive Date: 20140423
  Receipt Date: 20140812
  Transmission Date: 20150326
  Serious: Yes (Other)
  Sender: FDA-Public Use
  Company Number: VAL_03082_2014

PATIENT
  Age: 68 Year
  Sex: Female

DRUGS (1)
  1. PARLODEL [Suspect]
     Active Substance: BROMOCRIPTINE MESYLATE
     Indication: CUSHING^S SYNDROME
     Dosage: ([DF, 7  DAYS PER YEAR X 7 YEARS] ORAL)
     Route: 048

REACTIONS (4)
  - No therapeutic response [None]
  - Infection [None]
  - Hypercorticoidism [None]
  - Product quality issue [None]
